FAERS Safety Report 25870869 (Version 1)
Quarter: 2025Q4

REPORT INFORMATION
  Report Type: Spontaneous
  Country: IQ (occurrence: IQ)
  Receive Date: 20251001
  Receipt Date: 20251001
  Transmission Date: 20260117
  Serious: Yes (Other)
  Sender: PHARMACEUTICAL ASSOC
  Company Number: IQ-PAIPHARMA-2025-IQ-000001

PATIENT
  Age: 28 Year
  Sex: Male

DRUGS (1)
  1. IBUPROFEN [Suspect]
     Active Substance: IBUPROFEN
     Indication: Arthralgia
     Dosage: 400 MG 3 TO 4 TIMES DAILY

REACTIONS (4)
  - Cardiac aneurysm [Unknown]
  - Symptom masked [Unknown]
  - Drug abuse [Unknown]
  - Myocardial injury [Unknown]
